FAERS Safety Report 14650284 (Version 17)
Quarter: 2019Q3

REPORT INFORMATION
  Report Type: Report from Study
  Country: CA (occurrence: CA)
  Receive Date: 20180316
  Receipt Date: 20190822
  Transmission Date: 20191004
  Serious: Yes (Hospitalization, Other)
  Sender: FDA-Public Use
  Company Number: PHHY2015CA056374

PATIENT
  Age: 45 Year
  Sex: Male

DRUGS (12)
  1. AMBRISENTAN [Concomitant]
     Active Substance: AMBRISENTAN
     Indication: PULMONARY HYPERTENSION
     Dosage: 10 MG, QD
     Route: 065
     Dates: start: 20170704
  2. LUTETIUM (LU 177) [Concomitant]
     Active Substance: LUTETIUM LU-177
     Indication: PRODUCT USED FOR UNKNOWN INDICATION
     Dosage: UNK
     Route: 065
     Dates: start: 20170619
  3. SANDOSTATIN LAR DEPOT [Suspect]
     Active Substance: OCTREOTIDE ACETATE
     Dosage: 30 MG, QMO
     Route: 030
     Dates: start: 20161220
  4. SANDOSTATIN LAR DEPOT [Suspect]
     Active Substance: OCTREOTIDE ACETATE
     Indication: PANCREATIC NEUROENDOCRINE TUMOUR
     Dosage: 30 MG, QMO
     Route: 030
     Dates: start: 20150206, end: 20161024
  5. CARIPUL [Concomitant]
     Active Substance: EPOPROSTENOL
     Indication: PULMONARY HYPERTENSION
     Dosage: 1.5 ML/HOUR
     Route: 065
  6. CARIPUL [Concomitant]
     Active Substance: EPOPROSTENOL
     Dosage: 2.5 ML/HOUR BY 0.1 ML PER MONTH
     Route: 065
  7. CARIPUL [Concomitant]
     Active Substance: EPOPROSTENOL
     Dosage: 1.7ML/HOUR
     Route: 065
  8. CARIPUL [Concomitant]
     Active Substance: EPOPROSTENOL
     Dosage: 2.7 ML/HOUR BY 0.1 ML PER MONTH
     Route: 065
  9. CARIPUL [Concomitant]
     Active Substance: EPOPROSTENOL
     Dosage: 2.7 ML/HOUR BY 0.1 ML PER MONTH
     Route: 065
     Dates: start: 201712
  10. CARIPUL [Concomitant]
     Active Substance: EPOPROSTENOL
     Dosage: 2 ML/HOUR BY 0.1 ML PER MONTH
     Route: 065
  11. MACITENTAN [Concomitant]
     Active Substance: MACITENTAN
     Indication: PULMONARY HYPERTENSION
     Dosage: 10 MG, QD
     Route: 065
  12. SANDOSTATIN LAR DEPOT [Suspect]
     Active Substance: OCTREOTIDE ACETATE
     Dosage: 40 MG, QMO
     Route: 030
     Dates: start: 20161121, end: 20161121

REACTIONS (46)
  - Nasal congestion [Unknown]
  - Hyperhidrosis [Unknown]
  - Rhinorrhoea [Recovering/Resolving]
  - Malaise [Unknown]
  - Ear discomfort [Unknown]
  - Inguinal hernia [Unknown]
  - Pyrexia [Unknown]
  - Muscular weakness [Unknown]
  - Cardiac dysfunction [Unknown]
  - Hypoacusis [Recovering/Resolving]
  - Blood pressure increased [Unknown]
  - Concomitant disease aggravated [Unknown]
  - Blood pressure decreased [Unknown]
  - Pneumonia [Unknown]
  - Myocardial strain [Unknown]
  - Swelling face [Unknown]
  - Respiratory rate increased [Unknown]
  - Lymphocyte count decreased [Unknown]
  - Tooth abscess [Unknown]
  - Nasopharyngitis [Unknown]
  - Chest pain [Unknown]
  - Splenomegaly [Unknown]
  - Diarrhoea [Unknown]
  - Malignant neoplasm progression [Unknown]
  - Body temperature increased [Unknown]
  - Pneumonitis [Unknown]
  - Body temperature decreased [Unknown]
  - Platelet count decreased [Unknown]
  - Oedema peripheral [Unknown]
  - Dyspnoea [Unknown]
  - Oropharyngeal pain [Unknown]
  - Otitis externa [Recovering/Resolving]
  - Haemoglobin decreased [Unknown]
  - Lung disorder [Unknown]
  - Pancreatic neuroendocrine tumour [Unknown]
  - Chills [Unknown]
  - Sinusitis [Unknown]
  - Abdominal distension [Unknown]
  - Dyspnoea exertional [Unknown]
  - Needle issue [Unknown]
  - Splenic embolism [Unknown]
  - Stress [Unknown]
  - Dental caries [Unknown]
  - Flatulence [Unknown]
  - Fatigue [Unknown]
  - Myalgia [Unknown]

NARRATIVE: CASE EVENT DATE: 20160104
